FAERS Safety Report 7054619-2 (Version None)
Quarter: 2010Q4

REPORT INFORMATION
  Report Type: 
  Country: None (occurrence: None)
  Receive Date: 20101015
  Receipt Date: 20101006
  Transmission Date: 20110411
  Serious: Yes (Death, Life-Threatening, Hospitalization, Other)
  Sender: FDA-Public Use
  Company Number: 2010AC000487

PATIENT
  Age: 56 Year
  Sex: Female

DRUGS (37)
  1. DIGOXIN [Suspect]
     Dosage: PO
     Route: 048
     Dates: start: 20080221
  2. DIGOXIN [Suspect]
     Dosage: PO
     Route: 048
     Dates: start: 20011101
  3. DIGOXIN [Suspect]
     Dosage: 0.125 MG;QD;PO
     Route: 048
     Dates: end: 20080501
  4. LOPRESSOR [Concomitant]
  5. ZOCOR [Concomitant]
  6. PERCOCET [Concomitant]
  7. PRINIVIL [Concomitant]
  8. ASPIRIN [Concomitant]
  9. LASIX [Concomitant]
  10. ZAROXOLYN [Concomitant]
  11. COREG [Concomitant]
  12. LIPITOR [Concomitant]
  13. NEURONTIN [Concomitant]
  14. AMARYL [Concomitant]
  15. CLARITIN [Concomitant]
  16. METOLOZANE [Concomitant]
  17. MICRO-K [Concomitant]
  18. ZETIA [Concomitant]
  19. TRAMADOL HCL [Concomitant]
  20. ALLEGRA [Concomitant]
  21. CEFEPIME [Concomitant]
  22. FENTANYL [Concomitant]
  23. LANTUS [Concomitant]
  24. DUONEB [Concomitant]
  25. PROTONIX [Concomitant]
  26. ATIVAN [Concomitant]
  27. SYNTHROID [Concomitant]
  28. POTASSIUM CHLORIDE [Concomitant]
  29. GUAIFENESIN [Concomitant]
  30. IPRATROPIUM/ALBUTEROL INHALERS [Concomitant]
  31. PANTOPRAZOLE [Concomitant]
  32. LORAZEPAM [Concomitant]
  33. METOPROLOL [Concomitant]
  34. DOPAMINE [Concomitant]
  35. FISH OIL [Concomitant]
  36. VIT.B12 [Concomitant]
  37. OXYGEN [Concomitant]

REACTIONS (52)
  - ACUTE PULMONARY OEDEMA [None]
  - ANAEMIA [None]
  - ARTERIOSCLEROSIS CORONARY ARTERY [None]
  - ASCITES [None]
  - ASTHENIA [None]
  - ATELECTASIS [None]
  - BACTERAEMIA [None]
  - BRONCHIAL SECRETION RETENTION [None]
  - CARDIAC ARREST [None]
  - CARDIAC FAILURE CONGESTIVE [None]
  - CARDIO-RESPIRATORY ARREST [None]
  - CARDIOGENIC SHOCK [None]
  - CEREBRAL ATROPHY [None]
  - COLITIS ISCHAEMIC [None]
  - CREPITATIONS [None]
  - DEPRESSED LEVEL OF CONSCIOUSNESS [None]
  - DILATATION ATRIAL [None]
  - DILATATION VENTRICULAR [None]
  - ELECTROMECHANICAL DISSOCIATION [None]
  - ESCHERICHIA TEST POSITIVE [None]
  - GASTROINTESTINAL HAEMORRHAGE [None]
  - HAEMODIALYSIS [None]
  - HYPERBILIRUBINAEMIA [None]
  - HYPERHIDROSIS [None]
  - HYPERTENSION [None]
  - HYPOGLYCAEMIA [None]
  - HYPOKALAEMIA [None]
  - HYPOTENSION [None]
  - HYPOXIC-ISCHAEMIC ENCEPHALOPATHY [None]
  - INTERNATIONAL NORMALISED RATIO INCREASED [None]
  - KLEBSIELLA TEST POSITIVE [None]
  - LETHARGY [None]
  - MENTAL STATUS CHANGES [None]
  - METABOLIC ENCEPHALOPATHY [None]
  - MITRAL VALVE INCOMPETENCE [None]
  - MULTIPLE INJURIES [None]
  - MYOCARDIAL INFARCTION [None]
  - OCCULT BLOOD [None]
  - OEDEMA [None]
  - PALLOR [None]
  - PEDAL PULSE DECREASED [None]
  - PLEURAL EFFUSION [None]
  - PSEUDOMONAS TEST POSITIVE [None]
  - PULMONARY HYPERTENSION [None]
  - RENAL FAILURE [None]
  - RHONCHI [None]
  - SALIVARY HYPERSECRETION [None]
  - SEPSIS [None]
  - SINUS BRADYCARDIA [None]
  - SINUS TACHYCARDIA [None]
  - SINUSITIS [None]
  - WEANING FAILURE [None]
